FAERS Safety Report 8781679 (Version 1)
Quarter: 2012Q4

REPORT INFORMATION
  Report Type: 
  Country: IN (occurrence: IN)
  Receive Date: 20120913
  Receipt Date: 20120913
  Transmission Date: 20130627
  Serious: Yes (Other)
  Sender: FDA-Public Use
  Company Number: IN-ASTELLAS-2012JP008393

PATIENT
  Sex: Male

DRUGS (2)
  1. TACROLIMUS [Suspect]
     Route: 048
  2. TACROLIMUS [Suspect]
     Dosage: UNK
     Route: 048

REACTIONS (2)
  - Tremor [Unknown]
  - Adverse event [Unknown]
